FAERS Safety Report 6346512-5 (Version None)
Quarter: 2009Q3

REPORT INFORMATION
  Report Type: 
  Country: None (occurrence: None)
  Receive Date: 20090909
  Receipt Date: 20090828
  Transmission Date: 20100115
  Serious: Yes (Hospitalization)
  Sender: FDA-Public Use
  Company Number: US-ELI_LILLY_AND_COMPANY-US200906004999

PATIENT
  Sex: Female

DRUGS (1)
  1. FORTEO [Suspect]
     Dates: start: 20090401

REACTIONS (4)
  - ATRIAL FIBRILLATION [None]
  - COAGULOPATHY [None]
  - DIZZINESS [None]
  - VERTIGO [None]
